FAERS Safety Report 10266076 (Version 6)
Quarter: 2014Q4

REPORT INFORMATION
  Report Type: Spontaneous
  Country: US (occurrence: US)
  Receive Date: 20140627
  Receipt Date: 20141107
  Transmission Date: 20150528
  Serious: Yes (Hospitalization, Other)
  Sender: FDA-Public Use
  Company Number: US-009507513-1406USA012108

PATIENT
  Sex: Female

DRUGS (2)
  1. FOSAMAX [Suspect]
     Active Substance: ALENDRONATE SODIUM
     Indication: OSTEOPOROSIS
     Dosage: 70 MG, UNK
     Route: 048
     Dates: start: 20050325, end: 20120706
  2. ALENDRONATE SODIUM. [Suspect]
     Active Substance: ALENDRONATE SODIUM
     Dosage: 70 MG, UNK
     Route: 048
     Dates: start: 20080409, end: 20120611

REACTIONS (12)
  - Osteoarthritis [Unknown]
  - Hip arthroplasty [Unknown]
  - Low turnover osteopathy [Unknown]
  - Catheterisation cardiac [Unknown]
  - Intramedullary rod insertion [Unknown]
  - Anaemia [Unknown]
  - Medical device removal [Unknown]
  - Femur fracture [Unknown]
  - Hip arthroplasty [Recovering/Resolving]
  - Hypertension [Unknown]
  - Atrial fibrillation [Unknown]
  - Hyperthyroidism [Unknown]

NARRATIVE: CASE EVENT DATE: 2012
